FAERS Safety Report 20485775 (Version 11)
Quarter: 2022Q4

REPORT INFORMATION
  Report Type: Report from Study
  Country: US (occurrence: US)
  Receive Date: 20220217
  Receipt Date: 20221228
  Transmission Date: 20230113
  Serious: Yes (Hospitalization, Other)
  Sender: FDA-Public Use
  Company Number: US-TAKEDA-2022TUS011125

PATIENT
  Sex: Female

DRUGS (12)
  1. TEDUGLUTIDE [Suspect]
     Active Substance: TEDUGLUTIDE
     Indication: Short-bowel syndrome
     Dosage: 3.29 MILLIGRAM, QD
     Route: 058
     Dates: start: 20220114
  2. TEDUGLUTIDE [Suspect]
     Active Substance: TEDUGLUTIDE
     Indication: Short-bowel syndrome
     Dosage: 3.29 MILLIGRAM, QD
     Route: 058
     Dates: start: 20220114
  3. TEDUGLUTIDE [Suspect]
     Active Substance: TEDUGLUTIDE
     Indication: Short-bowel syndrome
     Dosage: 3.29 MILLIGRAM, QD
     Route: 058
     Dates: start: 20220114
  4. TEDUGLUTIDE [Suspect]
     Active Substance: TEDUGLUTIDE
     Indication: Short-bowel syndrome
     Dosage: 3.29 MILLIGRAM, QD
     Route: 058
     Dates: start: 20220114
  5. TEDUGLUTIDE [Suspect]
     Active Substance: TEDUGLUTIDE
     Dosage: 3.29 MILLIGRAM, QD
     Route: 058
     Dates: start: 20220115
  6. TEDUGLUTIDE [Suspect]
     Active Substance: TEDUGLUTIDE
     Dosage: 3.29 MILLIGRAM, QD
     Route: 058
     Dates: start: 20220115
  7. TEDUGLUTIDE [Suspect]
     Active Substance: TEDUGLUTIDE
     Dosage: 3.29 MILLIGRAM, QD
     Route: 058
     Dates: start: 20220115
  8. TEDUGLUTIDE [Suspect]
     Active Substance: TEDUGLUTIDE
     Dosage: 3.29 MILLIGRAM, QD
     Route: 058
     Dates: start: 20220115
  9. TEDUGLUTIDE [Suspect]
     Active Substance: TEDUGLUTIDE
     Dosage: 3.29 MILLIGRAM, QD
     Route: 058
     Dates: start: 202201
  10. TEDUGLUTIDE [Suspect]
     Active Substance: TEDUGLUTIDE
     Dosage: 3.29 MILLIGRAM, QD
     Route: 058
     Dates: start: 202201
  11. TEDUGLUTIDE [Suspect]
     Active Substance: TEDUGLUTIDE
     Dosage: 3.29 MILLIGRAM, QD
     Route: 058
     Dates: start: 202201
  12. TEDUGLUTIDE [Suspect]
     Active Substance: TEDUGLUTIDE
     Dosage: 3.29 MILLIGRAM, QD
     Route: 058
     Dates: start: 202201

REACTIONS (18)
  - Stoma prolapse [Unknown]
  - Nephrolithiasis [Unknown]
  - Haemorrhage [Unknown]
  - Cholelithiasis [Not Recovered/Not Resolved]
  - Stoma complication [Unknown]
  - Weight decreased [Unknown]
  - Urinary tract infection [Unknown]
  - Gastrointestinal stoma output increased [Unknown]
  - Poor quality sleep [Unknown]
  - General physical health deterioration [Unknown]
  - Abdominal discomfort [Unknown]
  - Anxiety [Unknown]
  - Abdominal pain upper [Unknown]
  - Decreased appetite [Unknown]
  - Headache [Recovered/Resolved]
  - Abdominal distension [Unknown]
  - Product dose omission issue [Unknown]
  - Inappropriate schedule of product administration [Unknown]
